FAERS Safety Report 24250768 (Version 1)
Quarter: 2024Q3

REPORT INFORMATION
  Report Type: Spontaneous
  Country: US (occurrence: US)
  Receive Date: 20240826
  Receipt Date: 20240826
  Transmission Date: 20241017
  Serious: No
  Sender: MEDEXUS PHARMA
  Company Number: US-MEDEXUS PHARMA, INC.-2024MED00242

PATIENT
  Age: 47 Year
  Sex: Female

DRUGS (4)
  1. RASUVO [Suspect]
     Active Substance: METHOTREXATE SODIUM
     Indication: Rheumatoid arthritis
     Dosage: 15 MG, 1X/WEEK ON SATURDAYS TO STOMACH
  2. RASUVO [Suspect]
     Active Substance: METHOTREXATE SODIUM
     Indication: Uveitis
  3. RASUVO [Suspect]
     Active Substance: METHOTREXATE SODIUM
     Indication: Rheumatoid arthritis
     Dosage: TO STOMACH
  4. RASUVO [Suspect]
     Active Substance: METHOTREXATE SODIUM
     Indication: Uveitis

REACTIONS (5)
  - Injection site pain [Not Recovered/Not Resolved]
  - Wound [Recovering/Resolving]
  - Device failure [Not Recovered/Not Resolved]
  - Device mechanical issue [Not Recovered/Not Resolved]
  - Product dose omission issue [Not Recovered/Not Resolved]

NARRATIVE: CASE EVENT DATE: 20240511
